FAERS Safety Report 22876079 (Version 11)
Quarter: 2024Q4

REPORT INFORMATION
  Report Type: Spontaneous
  Country: US (occurrence: US)
  Receive Date: 20230829
  Receipt Date: 20241011
  Transmission Date: 20250114
  Serious: Yes (Other)
  Sender: GLAXOSMITHKLINE
  Company Number: US-GLAXOSMITHKLINE-US2023AMR115970

PATIENT

DRUGS (5)
  1. ZEJULA [Suspect]
     Active Substance: NIRAPARIB
     Indication: Ovarian cancer
     Dosage: 200 MG, QD
  2. ZEJULA [Suspect]
     Active Substance: NIRAPARIB
     Dosage: 100 MG, QD
  3. TRAZODONE [Suspect]
     Active Substance: TRAZODONE HYDROCHLORIDE
     Indication: Insomnia
     Dosage: UNK
  4. MELATONIN [Suspect]
     Active Substance: MELATONIN
     Indication: Insomnia
     Dosage: UNK
  5. TYLENOL [Concomitant]
     Active Substance: ACETAMINOPHEN
     Indication: Product used for unknown indication
     Dosage: UNK

REACTIONS (29)
  - Neuropathy peripheral [Not Recovered/Not Resolved]
  - Pulmonary congestion [Unknown]
  - Constipation [Unknown]
  - Insomnia [Not Recovered/Not Resolved]
  - Hypoaesthesia [Not Recovered/Not Resolved]
  - Pain in extremity [Unknown]
  - Brain fog [Unknown]
  - Headache [Unknown]
  - Influenza [Unknown]
  - Fall [Unknown]
  - Joint injury [Unknown]
  - Contusion [Unknown]
  - Pollakiuria [Not Recovered/Not Resolved]
  - Arthralgia [Unknown]
  - Neuralgia [Recovered/Resolved]
  - Decreased appetite [Not Recovered/Not Resolved]
  - White blood cell count decreased [Unknown]
  - Glucose tolerance impaired [Unknown]
  - Fatigue [Not Recovered/Not Resolved]
  - Neck pain [Unknown]
  - Peripheral coldness [Unknown]
  - Poor peripheral circulation [Unknown]
  - Illness [Unknown]
  - Weight increased [Unknown]
  - Platelet count decreased [Recovering/Resolving]
  - Pain [Unknown]
  - Paraesthesia [Unknown]
  - Disturbance in attention [Unknown]
  - Somnolence [Unknown]

NARRATIVE: CASE EVENT DATE: 20230901
